FAERS Safety Report 21144079 (Version 4)
Quarter: 2022Q4

REPORT INFORMATION
  Report Type: Report from Study
  Country: BR (occurrence: BR)
  Receive Date: 20220728
  Receipt Date: 20221102
  Transmission Date: 20230112
  Serious: No
  Sender: FDA-Public Use
  Company Number: BR-BIOGEN-2022BI01142482

PATIENT
  Sex: Female
  Weight: 58 kg

DRUGS (3)
  1. TECFIDERA [Suspect]
     Active Substance: DIMETHYL FUMARATE
     Indication: Multiple sclerosis
     Route: 050
     Dates: end: 2020
  2. DULOXETINE [Concomitant]
     Active Substance: DULOXETINE
     Indication: Depression
     Route: 050
     Dates: start: 2021
  3. MIRTAZAPINE [Concomitant]
     Active Substance: MIRTAZAPINE
     Indication: Depression
     Dosage: HALF A PILL AT NIGHT
     Route: 050
     Dates: start: 202207

REACTIONS (7)
  - Fibromyalgia [Not Recovered/Not Resolved]
  - Throat tightness [Recovered/Resolved]
  - Pyrexia [Unknown]
  - Cough [Unknown]
  - Memory impairment [Not Recovered/Not Resolved]
  - Pain [Not Recovered/Not Resolved]
  - Hypersensitivity [Recovered/Resolved]

NARRATIVE: CASE EVENT DATE: 20200101
